FAERS Safety Report 9059928 (Version 2)
Quarter: 2013Q1

REPORT INFORMATION
  Report Type: Spontaneous
  Country: BR (occurrence: BR)
  Receive Date: 20130212
  Receipt Date: 20130318
  Transmission Date: 20140127
  Serious: Yes (Other)
  Sender: FDA-Public Use
  Company Number: PHHY2013BR012681

PATIENT
  Sex: Female

DRUGS (6)
  1. DIOVAN [Suspect]
     Dosage: 80 MG, (12 X 12, 2 TIMER PER DAY)
     Route: 048
  2. DIOVAN [Suspect]
     Dosage: 80 MG,
     Route: 048
  3. AAS [Concomitant]
     Dosage: 1 DF (100 MG), A DAY
     Route: 048
  4. PURAN T4 [Concomitant]
     Indication: HYPOTHYROIDISM
     Dosage: 50 UG, A DAY
     Route: 048
  5. METFORMIN [Concomitant]
     Indication: DIABETES MELLITUS
     Dosage: 2 DF (850 MG DF), A DAY
     Route: 048
  6. GLIMEPIRIDE [Concomitant]
     Indication: BLOOD GLUCOSE INCREASED
     Dosage: 1 DF (40 MG), A DAY
     Route: 048

REACTIONS (2)
  - Cerebrovascular accident [Recovering/Resolving]
  - Dementia Alzheimer^s type [Recovering/Resolving]
